FAERS Safety Report 25767193 (Version 1)
Quarter: 2025Q3

REPORT INFORMATION
  Report Type: Spontaneous
  Country: US (occurrence: None)
  Receive Date: 20250904
  Receipt Date: 20250904
  Transmission Date: 20251021
  Serious: Yes (Other)
  Sender: FDA-CTU
  Company Number: None

PATIENT
  Age: 37 Year
  Sex: Female
  Weight: 60.75 kg

DRUGS (3)
  1. FLUTICASONE PROPIONATE [Suspect]
     Active Substance: FLUTICASONE PROPIONATE
     Indication: Hypersensitivity
     Route: 055
     Dates: start: 20250828, end: 20250829
  2. FLUTICASONE PROPIONATE [Suspect]
     Active Substance: FLUTICASONE PROPIONATE
     Indication: Nasal congestion
  3. FLUTICASONE PROPIONATE [Suspect]
     Active Substance: FLUTICASONE PROPIONATE
     Indication: Rhinorrhoea

REACTIONS (13)
  - Rhinorrhoea [None]
  - Body temperature fluctuation [None]
  - Cough [None]
  - Oropharyngeal pain [None]
  - Rhinalgia [None]
  - Nasal discomfort [None]
  - Nasal congestion [None]
  - Nasal mucosal blistering [None]
  - Nasal discomfort [None]
  - Swelling of nose [None]
  - Erythema [None]
  - Chemical burn [None]
  - Rhinalgia [None]

NARRATIVE: CASE EVENT DATE: 20250831
